FAERS Safety Report 4708114-3 (Version None)
Quarter: 2005Q2

REPORT INFORMATION
  Report Type: 
  Country: None (occurrence: None)
  Receive Date: 20050629
  Receipt Date: 20050321
  Transmission Date: 20051028
  Serious: No
  Sender: FDA-Public Use
  Company Number: 05P-163-0294718-00

PATIENT
  Age: 64 Year
  Sex: Female
  Weight: 89.8122 kg

DRUGS (9)
  1. HUMIRA [Suspect]
     Indication: RHEUMATOID ARTHRITIS
     Dosage: 40 MG, 1 IN 2 WK, SUBCUTANEOUS
     Route: 058
     Dates: start: 20041201
  2. COUMADIN [Concomitant]
  3. INSULIN [Concomitant]
  4. PREDNISONE TAB [Concomitant]
  5. CAPTOPRIL [Concomitant]
  6. HYDROCHLOROTHIAZIDE [Concomitant]
  7. DIGOXIN [Concomitant]
  8. FUROSEMIDE [Concomitant]
  9. DYAZIDE [Concomitant]

REACTIONS (2)
  - ARTHRALGIA [None]
  - ARTHRITIS [None]
